FAERS Safety Report 4590883-7 (Version None)
Quarter: 2005Q1

REPORT INFORMATION
  Report Type: 
  Country: None (occurrence: None)
  Receive Date: 20050225
  Receipt Date: 20040721
  Transmission Date: 20050727
  Serious: No
  Sender: FDA-Public Use
  Company Number: US-GLAXOSMITHKLINE-A0519235A

PATIENT
  Age: 69 Year
  Sex: Male

DRUGS (2)
  1. ABACAVIR [Suspect]
     Indication: HIV INFECTION
     Dosage: 300MG TWICE PER DAY
     Route: 048
  2. OTHER MEDICATIONS [Concomitant]

REACTIONS (3)
  - DYSPNOEA [None]
  - SKIN EXFOLIATION [None]
  - WEIGHT DECREASED [None]
